FAERS Safety Report 20999989 (Version 1)
Quarter: 2022Q2

REPORT INFORMATION
  Report Type: Spontaneous
  Country: US (occurrence: US)
  Receive Date: 20220623
  Receipt Date: 20220623
  Transmission Date: 20220721
  Serious: No
  Sender: FDA-Public Use
  Company Number: US-BAYER-2022A086945

PATIENT

DRUGS (1)
  1. LAMPIT [Suspect]
     Active Substance: NIFURTIMOX

REACTIONS (1)
  - Incorrect dose administered [None]
